FAERS Safety Report 10061710 (Version 1)
Quarter: 2014Q2

REPORT INFORMATION
  Report Type: Spontaneous
  Country: US (occurrence: US)
  Receive Date: 20140407
  Receipt Date: 20140407
  Transmission Date: 20141212
  Serious: No
  Sender: FDA-Public Use
  Company Number: US-TARO-2014P1001392

PATIENT
  Age: 56 Year
  Sex: Male
  Weight: 86.18 kg

DRUGS (2)
  1. FLUOROURACIL TOPICAL CREAM USP 5% [Suspect]
     Indication: SKIN PAPILLOMA
     Route: 061
     Dates: start: 1984
  2. FLUOROURACIL TOPICAL CREAM USP 5% [Suspect]
     Indication: SKIN PAPILLOMA
     Route: 061
     Dates: start: 20140127

REACTIONS (3)
  - Burning sensation [Recovered/Resolved]
  - Erythema [Recovered/Resolved]
  - Drug ineffective for unapproved indication [Recovered/Resolved]
